FAERS Safety Report 17085969 (Version 1)
Quarter: 2019Q4

REPORT INFORMATION
  Report Type: Spontaneous
  Country: US (occurrence: US)
  Receive Date: 20191127
  Receipt Date: 20191127
  Transmission Date: 20200122
  Serious: Yes (Life-Threatening, Other)
  Sender: FDA-Public Use
  Company Number: None

PATIENT
  Age: 47 Year
  Sex: Female
  Weight: 103.5 kg

DRUGS (1)
  1. AIMOVIG [Suspect]
     Active Substance: ERENUMAB-AOOE
     Indication: HEADACHE
     Dosage: ?          QUANTITY:1 INJECTION(S);OTHER FREQUENCY:MONTH;?
     Route: 058
     Dates: start: 20191126, end: 20191126

REACTIONS (8)
  - Asthenia [None]
  - Vision blurred [None]
  - Paraesthesia [None]
  - Hypoaesthesia [None]
  - Dyspnoea [None]
  - Pruritus [None]
  - Rash macular [None]
  - Headache [None]

NARRATIVE: CASE EVENT DATE: 20191126
